FAERS Safety Report 12812233 (Version 3)
Quarter: 2016Q4

REPORT INFORMATION
  Report Type: Report from Study
  Country: PL (occurrence: PL)
  Receive Date: 20161005
  Receipt Date: 20161028
  Transmission Date: 20170207
  Serious: Yes (Hospitalization, Other)
  Sender: FDA-Public Use
  Company Number: PHHY2016PL100169

PATIENT
  Age: 63 Year
  Sex: Female
  Weight: 95 kg

DRUGS (4)
  1. METFORMAX [Concomitant]
     Active Substance: METFORMIN HYDROCHLORIDE
     Indication: TYPE 2 DIABETES MELLITUS
     Dosage: 1 DF, BID (2X1 TABLET)
     Route: 065
  2. TASIGNA [Suspect]
     Active Substance: NILOTINIB
     Dosage: 400 MG, UNK
     Route: 048
     Dates: end: 20160928
  3. TASIGNA [Suspect]
     Active Substance: NILOTINIB
     Dosage: 600 MG, QD
     Route: 048
     Dates: start: 20160705
  4. TASIGNA [Suspect]
     Active Substance: NILOTINIB
     Indication: PRODUCT USED FOR UNKNOWN INDICATION
     Dosage: 800 MG, QD
     Route: 048
     Dates: start: 20160621, end: 20160705

REACTIONS (9)
  - Blast cells [Unknown]
  - Haemoglobin decreased [Recovered/Resolved]
  - Haemoglobin decreased [Unknown]
  - Blast cell crisis [Unknown]
  - Rash [Recovered/Resolved]
  - Anaemia [Unknown]
  - Blast cell count increased [Unknown]
  - Leukopenia [Unknown]
  - Thrombocytopenia [Unknown]

NARRATIVE: CASE EVENT DATE: 20160705
